FAERS Safety Report 12613044 (Version 1)
Quarter: 2016Q3

REPORT INFORMATION
  Report Type: Report from Study
  Country: US (occurrence: US)
  Receive Date: 20160802
  Receipt Date: 20160802
  Transmission Date: 20161109
  Serious: Yes (Other)
  Sender: FDA-Public Use
  Company Number: US-ROCHE-1806471

PATIENT
  Age: 62 Year
  Sex: Male

DRUGS (1)
  1. VISMODEGIB [Suspect]
     Active Substance: VISMODEGIB
     Indication: GLIOBLASTOMA MULTIFORME
     Dosage: LAST DOSE RECEIVED ON 13/APR/2011
     Route: 048
     Dates: start: 20110308

REACTIONS (2)
  - Embolism [Unknown]
  - Atrial flutter [Unknown]
